FAERS Safety Report 16510414 (Version 2)
Quarter: 2019Q3

REPORT INFORMATION
  Report Type: Spontaneous
  Country: GB (occurrence: GB)
  Receive Date: 20190702
  Receipt Date: 20190814
  Transmission Date: 20191004
  Serious: Yes (Other)
  Sender: FDA-Public Use
  Company Number: GB-TEVA-2019-GB-1069409

PATIENT
  Sex: Male

DRUGS (1)
  1. PHENYTOIN SODIUM 100MG [Suspect]
     Active Substance: PHENYTOIN SODIUM
     Indication: PRODUCT USED FOR UNKNOWN INDICATION
     Route: 048

REACTIONS (4)
  - Lethargy [Recovered/Resolved]
  - Epilepsy [Unknown]
  - Drug ineffective [Unknown]
  - Photopsia [Recovered/Resolved]
